FAERS Safety Report 21896416 (Version 2)
Quarter: 2023Q1

REPORT INFORMATION
  Report Type: Report from Study
  Country: US (occurrence: US)
  Receive Date: 20230123
  Receipt Date: 20230331
  Transmission Date: 20230418
  Serious: Yes (Other)
  Sender: FDA-Public Use
  Company Number: US-ABBVIE-4278538

PATIENT
  Age: 69 Year

DRUGS (1)
  1. IMBRUVICA [Suspect]
     Active Substance: IBRUTINIB
     Indication: Chronic lymphocytic leukaemia
     Route: 048
     Dates: start: 201812

REACTIONS (3)
  - Dysplasia [Not Recovered/Not Resolved]
  - Nail injury [Unknown]
  - Abscess limb [Unknown]

NARRATIVE: CASE EVENT DATE: 20220901
